FAERS Safety Report 7733286-6 (Version None)
Quarter: 2011Q3

REPORT INFORMATION
  Report Type: 
  Country: None (occurrence: None)
  Receive Date: 20110907
  Receipt Date: 20110831
  Transmission Date: 20111222
  Serious: Yes (Death, Life-Threatening, Hospitalization)
  Sender: FDA-Public Use
  Company Number: TW-BAYER-2010-005187

PATIENT
  Age: 56 Year
  Sex: Male
  Weight: 67 kg

DRUGS (18)
  1. BARACLUDE [Concomitant]
     Indication: HEPATITIS B
     Dosage: DAILY DOSE .5 MG
     Route: 048
     Dates: start: 20101126, end: 20101216
  2. BROWN MIXTURE [Concomitant]
     Indication: COUGH
     Dosage: 15 ML, QID
     Route: 048
     Dates: start: 20101112, end: 20101216
  3. BROWN MIXTURE [Concomitant]
     Dosage: 40 ML, QID
     Route: 048
     Dates: start: 20101105, end: 20101111
  4. METOCLOPRAMIDE [Concomitant]
     Indication: NAUSEA
     Dosage: 15 MG, TID
     Route: 048
     Dates: start: 20101210, end: 20101216
  5. CEFTRIAXON SANDOZ [Concomitant]
     Indication: PROPHYLAXIS
     Dosage: 1000 MG, STAT
     Route: 042
     Dates: start: 20101216, end: 20101216
  6. CIMETIDINE [Concomitant]
     Indication: ABDOMINAL DISTENSION
     Dosage: 600 MG, TID
     Route: 048
     Dates: start: 20101210, end: 20101216
  7. IOVERSOL [Concomitant]
     Indication: DIAGNOSTIC PROCEDURE
     Dosage: 100 ML, STAT
     Route: 042
     Dates: start: 20101214, end: 20101214
  8. IOVERSOL [Concomitant]
     Dosage: 100 ML, STAT
     Route: 042
     Dates: start: 20101102, end: 20101102
  9. AMLODIPINE [Concomitant]
     Indication: HYPERTENSION
     Dosage: 5 MG, QD
     Route: 048
     Dates: start: 20101112, end: 20101216
  10. NOREPINEPHRINE BITARTRATE [Concomitant]
     Indication: PROPHYLAXIS
     Dosage: 16 MG, ONCE
     Route: 042
     Dates: start: 20101217, end: 20101217
  11. CEFTRIAXON SANDOZ [Concomitant]
     Dosage: 1000 MG, Q 12H
     Route: 042
     Dates: start: 20101216, end: 20101217
  12. MORPHINE HCL ELIXIR [Concomitant]
     Indication: ABDOMINAL PAIN
     Dosage: 15 MG, STAT
     Route: 030
     Dates: start: 20101217, end: 20101217
  13. BUMETANIDE [Concomitant]
     Indication: OEDEMA PERIPHERAL
     Dosage: 1 MG, QD
     Route: 048
     Dates: start: 20101210, end: 20101216
  14. NEXAVAR [Suspect]
     Indication: HEPATIC NEOPLASM MALIGNANT
     Dosage: 400 MG, BID
     Route: 048
     Dates: start: 20101105, end: 20101125
  15. NEXAVAR [Suspect]
     Dosage: 400 MG, QD
     Route: 048
     Dates: start: 20101126, end: 20101215
  16. NEXAVAR [Suspect]
  17. SODIUM BICARBONATE [Concomitant]
     Indication: PROPHYLAXIS
     Dosage: 120 ML, ONCE
     Route: 042
     Dates: start: 20101216, end: 20101216
  18. DEXTROMETHORPHAN HYDROBROMIDE [Concomitant]
     Indication: PROPHYLAXIS
     Dosage: 20 MG, TID
     Route: 048
     Dates: start: 20101216, end: 20101216

REACTIONS (5)
  - ASPARTATE AMINOTRANSFERASE INCREASED [None]
  - MULTI-ORGAN FAILURE [None]
  - VOMITING [None]
  - ALANINE AMINOTRANSFERASE INCREASED [None]
  - NAUSEA [None]
